FAERS Safety Report 25570366 (Version 2)
Quarter: 2025Q3

REPORT INFORMATION
  Report Type: Spontaneous
  Country: KR (occurrence: KR)
  Receive Date: 20250717
  Receipt Date: 20250721
  Transmission Date: 20251021
  Serious: Yes (Other)
  Sender: AMGEN
  Company Number: KR-KYOWAKIRIN-2025KK013354

PATIENT
  Sex: Female

DRUGS (1)
  1. NEULASTA [Suspect]
     Active Substance: PEGFILGRASTIM
     Indication: Product used for unknown indication
     Dosage: 6 MG, QD
     Route: 065
     Dates: start: 20241209, end: 20241209

REACTIONS (3)
  - Seizure [Recovered/Resolved]
  - Heart rate decreased [Recovered/Resolved]
  - Hypotension [Recovered/Resolved]

NARRATIVE: CASE EVENT DATE: 20241209
